FAERS Safety Report 22926919 (Version 3)
Quarter: 2023Q4

REPORT INFORMATION
  Report Type: Report from Study
  Country: US (occurrence: US)
  Receive Date: 20230911
  Receipt Date: 20231025
  Transmission Date: 20240110
  Serious: Yes (Hospitalization)
  Sender: FDA-Public Use
  Company Number: US-ABBVIE-5398903

PATIENT
  Sex: Male

DRUGS (2)
  1. VENCLEXTA [Suspect]
     Active Substance: VENETOCLAX
     Indication: Acute myeloid leukaemia
     Dosage: FORM STRENGTH: 100 MILLIGRAM,?1 TABS DAILY FOR 3 DAYS
     Route: 048
  2. VENCLEXTA [Suspect]
     Active Substance: VENETOCLAX
     Indication: Acute myeloid leukaemia
     Dosage: FORM STRENGTH: 100 MILLIGRAM,?TAKE 2 TABLETS BY MOUTH ONCE DAILY WITH FOOD AND A FULL GLASS?OF WATER
     Route: 048
     Dates: end: 2023

REACTIONS (4)
  - Gastrointestinal inflammation [Recovering/Resolving]
  - Abdominal pain upper [Not Recovered/Not Resolved]
  - Adverse food reaction [Unknown]
  - Fatigue [Not Recovered/Not Resolved]
